FAERS Safety Report 21835676 (Version 1)
Quarter: 2023Q1

REPORT INFORMATION
  Report Type: Report from Study
  Country: US (occurrence: US)
  Receive Date: 20230109
  Receipt Date: 20230109
  Transmission Date: 20230417
  Serious: Yes (Death, Hospitalization)
  Sender: FDA-Public Use
  Company Number: US-ABBVIE-4260448

PATIENT
  Age: 80 Year
  Sex: Male
  Weight: 68 kg

DRUGS (1)
  1. CREON [Suspect]
     Active Substance: PANCRELIPASE AMYLASE\PANCRELIPASE LIPASE\PANCRELIPASE PROTEASE
     Indication: Pancreatic disorder
     Dosage: THREE TIMES A DAY BEFORE EACH MEAL, 3600 UNITS
     Route: 048
     Dates: end: 20221227

REACTIONS (3)
  - Hepatic cirrhosis [Fatal]
  - Immune system disorder [Fatal]
  - Hernia [Recovering/Resolving]

NARRATIVE: CASE EVENT DATE: 20221017
